FAERS Safety Report 5982894-1 (Version None)
Quarter: 2008Q4

REPORT INFORMATION
  Report Type: 
  Country: None (occurrence: None)
  Receive Date: 20081208
  Receipt Date: 20081126
  Transmission Date: 20090506
  Serious: Yes (Hospitalization)
  Sender: FDA-Public Use
  Company Number: JP-BRISTOL-MYERS SQUIBB COMPANY-14427322

PATIENT
  Age: 81 Year
  Sex: Female

DRUGS (6)
  1. CARBIDOPA + LEVODOPA [Suspect]
     Dosage: TAB
     Route: 048
  2. PARLODEL [Concomitant]
     Dosage: TAB
     Route: 048
  3. MARZULENE-S [Concomitant]
     Dosage: FORM=POR
     Route: 048
  4. ISALON [Concomitant]
     Dosage: FORM=POR
     Route: 048
  5. MEVALOTIN [Concomitant]
     Dosage: FORM=POR
     Route: 048
  6. ALFAROL [Concomitant]
     Dosage: FORM=POR
     Route: 048

REACTIONS (1)
  - PNEUMONIA [None]
